FAERS Safety Report 21846076 (Version 5)
Quarter: 2023Q2

REPORT INFORMATION
  Report Type: Spontaneous
  Country: CA (occurrence: CA)
  Receive Date: 20230111
  Receipt Date: 20230411
  Transmission Date: 20230722
  Serious: Yes (Other)
  Sender: FDA-Public Use
  Company Number: CA-CELLTRION INC.-2022CA011103

PATIENT

DRUGS (22)
  1. INFLECTRA [Suspect]
     Active Substance: INFLIXIMAB-DYYB
     Indication: Pulmonary sarcoidosis
     Dosage: 360 MG,Q 0, 2, 6 WEEK DOSE, THEN Q 6 WEEKS
     Route: 042
  2. INFLECTRA [Suspect]
     Active Substance: INFLIXIMAB-DYYB
     Dosage: 360 MG,Q 0, 2, 6 WEEK DOSE, THEN Q 6 WEEKS
     Route: 042
     Dates: start: 20220710
  3. INFLECTRA [Suspect]
     Active Substance: INFLIXIMAB-DYYB
     Dosage: 360 MG,Q 0, 2, 6 WEEK DOSE, THEN Q 6 WEEKS
     Route: 042
     Dates: start: 20220719
  4. INFLECTRA [Suspect]
     Active Substance: INFLIXIMAB-DYYB
     Dosage: 360 MG,Q 0, 2, 6 WEEK DOSE, THEN Q 6 WEEKS
     Route: 042
     Dates: start: 20220719, end: 20230222
  5. INFLECTRA [Suspect]
     Active Substance: INFLIXIMAB-DYYB
     Dosage: 360 MG,Q 0, 2, 6 WEEK DOSE, THEN Q 6 WEEKS
     Route: 042
     Dates: start: 20220803
  6. INFLECTRA [Suspect]
     Active Substance: INFLIXIMAB-DYYB
     Dosage: 360 MG,Q 0, 2, 6 WEEK DOSE, THEN Q 6 WEEKS
     Route: 042
     Dates: start: 20220830
  7. INFLECTRA [Suspect]
     Active Substance: INFLIXIMAB-DYYB
     Dosage: 360 MG,Q 0, 2, 6 WEEK DOSE, THEN Q 6 WEEKS
     Route: 042
     Dates: start: 20220830
  8. INFLECTRA [Suspect]
     Active Substance: INFLIXIMAB-DYYB
     Dosage: 360 MG,Q 0, 2, 6 WEEK DOSE, THEN Q 6 WEEKS
     Route: 042
     Dates: start: 20221011
  9. INFLECTRA [Suspect]
     Active Substance: INFLIXIMAB-DYYB
     Dosage: 360 MG,Q 0, 2, 6 WEEK DOSE, THEN Q 6 WEEKS
     Route: 042
     Dates: start: 20221124
  10. INFLECTRA [Suspect]
     Active Substance: INFLIXIMAB-DYYB
     Dosage: 360 MG,Q 0, 2, 6 WEEK DOSE, THEN Q 6 WEEKS
     Route: 042
     Dates: start: 20230111
  11. INFLECTRA [Suspect]
     Active Substance: INFLIXIMAB-DYYB
     Dosage: 360 MG,Q 0, 2, 6 WEEK DOSE, THEN Q 6 WEEKS
     Route: 042
     Dates: start: 20230222, end: 20230222
  12. ATIVAN [Concomitant]
     Active Substance: LORAZEPAM
     Dosage: 1 DF, AS NEEDED,DOSAGE NOT AVAILABLE PRN
  13. AVELOX [Concomitant]
     Active Substance: MOXIFLOXACIN HYDROCHLORIDE
     Dosage: UNK
  14. LOSEC [Concomitant]
     Active Substance: OMEPRAZOLE
     Dosage: 1 DF,DOSAGE NOT AVAILABLE
  15. MINOCYCLINE [Concomitant]
     Active Substance: MINOCYCLINE HYDROCHLORIDE
     Dosage: 1 DF,100 (UNITS NOT PROVIDED) DAILY (1X/DAY)
     Route: 065
  16. MINOCYCLINE [Concomitant]
     Active Substance: MINOCYCLINE HYDROCHLORIDE
     Dosage: 1 DF,100 (UNITS NOT PROVIDED) DAILY
     Route: 065
  17. PREDNISONE [Concomitant]
     Active Substance: PREDNISONE
     Dosage: 5 MG, TAPER FROM 40MG
     Route: 065
     Dates: start: 201906
  18. SPIRIVA [Concomitant]
     Active Substance: TIOTROPIUM BROMIDE MONOHYDRATE
     Dosage: 1 DF,18 DOSAGE NOT AVAILABLE
  19. SPIRIVA [Concomitant]
     Active Substance: TIOTROPIUM BROMIDE MONOHYDRATE
     Dosage: 1 DF, (18) DOSAGE NOT AVAILABLE
     Route: 065
  20. SYMBICORT [Concomitant]
     Active Substance: BUDESONIDE\FORMOTEROL FUMARATE DIHYDRATE
     Dosage: 1 DF,200 DOSAGE NOT AVAILABLE
     Route: 065
  21. ALBUTEROL SULFATE [Concomitant]
     Active Substance: ALBUTEROL SULFATE
     Dosage: 1 DF, AS NEEDED,DOSAGE NOT AVAILABLE
     Route: 065
  22. ALBUTEROL SULFATE [Concomitant]
     Active Substance: ALBUTEROL SULFATE
     Dosage: 1 DF, DOSAGE NOT AVAILABLE
     Route: 065

REACTIONS (5)
  - Bronchitis bacterial [Recovering/Resolving]
  - Off label use [Unknown]
  - Oxygen saturation decreased [Recovering/Resolving]
  - Nasopharyngitis [Not Recovered/Not Resolved]
  - Inflammation [Not Recovered/Not Resolved]

NARRATIVE: CASE EVENT DATE: 20220719
